FAERS Safety Report 11834752 (Version 3)
Quarter: 2018Q4

REPORT INFORMATION
  Report Type: Spontaneous
  Country: US (occurrence: US)
  Receive Date: 20151215
  Receipt Date: 20181209
  Transmission Date: 20190204
  Serious: Yes (Hospitalization)
  Sender: FDA-Public Use
  Company Number: US-JNJFOC-20151102898

PATIENT
  Age: 70 Year
  Sex: Female

DRUGS (4)
  1. XARELTO [Suspect]
     Active Substance: RIVAROXABAN
     Indication: FACTOR V LEIDEN MUTATION
     Dosage: 10-20 MG
     Route: 048
     Dates: end: 20181030
  2. XARELTO [Suspect]
     Active Substance: RIVAROXABAN
     Indication: PULMONARY THROMBOSIS
     Route: 048
     Dates: start: 20141101, end: 201501
  3. XARELTO [Suspect]
     Active Substance: RIVAROXABAN
     Indication: PULMONARY THROMBOSIS
     Dosage: 10-20 MG
     Route: 048
     Dates: end: 20181030
  4. XARELTO [Suspect]
     Active Substance: RIVAROXABAN
     Indication: FACTOR V LEIDEN MUTATION
     Route: 048
     Dates: start: 20141101, end: 201501

REACTIONS (1)
  - Gastrointestinal haemorrhage [Unknown]

NARRATIVE: CASE EVENT DATE: 20150116
